FAERS Safety Report 24333595 (Version 1)
Quarter: 2024Q3

REPORT INFORMATION
  Report Type: Spontaneous
  Country: US (occurrence: None)
  Receive Date: 20240918
  Receipt Date: 20240918
  Transmission Date: 20241016
  Serious: Yes (Hospitalization)
  Sender: Public
  Company Number: None

PATIENT
  Age: 65 Year
  Sex: Female

DRUGS (5)
  1. NUTROPIN AQ [Suspect]
     Active Substance: SOMATROPIN
     Indication: Hypopituitarism
     Dosage: FREQUENCY : AS DIRECTED;?
     Route: 058
     Dates: start: 20160525
  2. LEVOXYL [Concomitant]
     Active Substance: LEVOTHYROXINE SODIUM
  3. LOVENOX [Concomitant]
     Active Substance: ENOXAPARIN SODIUM
  4. NUTROPIN AQ [Concomitant]
     Active Substance: SOMATROPIN
  5. WARFARIN [Concomitant]

REACTIONS (2)
  - Colonoscopy [None]
  - Procedural complication [None]

NARRATIVE: CASE EVENT DATE: 20240828
